FAERS Safety Report 8272425-8 (Version None)
Quarter: 2012Q2

REPORT INFORMATION
  Report Type: 
  Country: None (occurrence: None)
  Receive Date: 20120410
  Receipt Date: 20120404
  Transmission Date: 20120825
  Serious: Yes (Other)
  Sender: FDA-Public Use
  Company Number: IE-PFIZER INC-2012084645

PATIENT
  Age: 66 Year
  Sex: Male

DRUGS (13)
  1. LYRICA [Suspect]
     Dosage: 300 MG, 3X/DAY
     Route: 048
  2. LANSOPRAZOLE [Concomitant]
     Dosage: 1 DF, 1X/DAY, EACH MORNING
  3. ACETAMINOPHEN [Concomitant]
     Dosage: 500 MG, UNK
  4. LYRICA [Suspect]
     Dosage: 75 MG, 2X/DAY
     Route: 048
     Dates: start: 20110201
  5. CAPSAICIN [Concomitant]
     Dosage: 1 DF, 3X/DAY, SPARINGLY
  6. FENOFIBRATE [Concomitant]
     Dosage: 160 MG, 1X/DAY
  7. ALBUTEROL [Concomitant]
     Dosage: 100 UG, ONE OR TWO PUFFS AS REQUIRED
  8. TRAMADOL HCL [Concomitant]
     Dosage: 200 MG, 2X/DAY
  9. AMLODIPINE [Concomitant]
     Dosage: 10 MG, 1X/DAY
  10. NITROFURANTOIN [Concomitant]
     Dosage: 50 MG, 4X/DAY
  11. QUININE SULFATE [Concomitant]
     Dosage: 200 MG, 1X/DAY
  12. TEGRETOL [Concomitant]
     Dosage: 1 DF, 1X/DAY, AT NIGHT
  13. SENNA [Concomitant]
     Dosage: 7.5 MG, 2X/DAY, TAKEN AT NIGHT

REACTIONS (11)
  - ANGER [None]
  - DRUG DEPENDENCE [None]
  - HYPERHIDROSIS [None]
  - MYALGIA [None]
  - NEGATIVE THOUGHTS [None]
  - ANXIETY [None]
  - CHILLS [None]
  - FEELING COLD [None]
  - TREMOR [None]
  - WITHDRAWAL SYNDROME [None]
  - IRRITABILITY [None]
